FAERS Safety Report 5624273-2 (Version None)
Quarter: 2008Q1

REPORT INFORMATION
  Report Type: 
  Country: None (occurrence: None)
  Receive Date: 20080213
  Receipt Date: 20080207
  Transmission Date: 20080703
  Serious: Yes (Hospitalization)
  Sender: FDA-Public Use
  Company Number: IT-BAYER-200812864GPV

PATIENT
  Age: 65 Year
  Sex: Male

DRUGS (4)
  1. NEXAVAR [Suspect]
     Indication: RENAL CELL CARCINOMA
     Dosage: TOTAL DAILY DOSE: 200 MG
     Route: 048
     Dates: start: 20071120, end: 20080101
  2. DEXAMETHASONE [Concomitant]
     Indication: RENAL CELL CARCINOMA
     Route: 042
  3. MORPHINE CHLORHYDRATE [Concomitant]
     Indication: RENAL CELL CARCINOMA
     Route: 041
  4. LIMICAN [Concomitant]
     Indication: RENAL CELL CARCINOMA
     Route: 041

REACTIONS (2)
  - INTESTINAL PERFORATION [None]
  - PERITONITIS [None]
